FAERS Safety Report 10189080 (Version 2)
Quarter: 2014Q3

REPORT INFORMATION
  Report Type: Spontaneous
  Country: US (occurrence: US)
  Receive Date: 20140522
  Receipt Date: 20140923
  Transmission Date: 20150326
  Serious: Yes (Other)
  Sender: FDA-Public Use
  Company Number: US-BAYER-2014-075726

PATIENT
  Age: 21 Year
  Sex: Female

DRUGS (1)
  1. MIRENA [Suspect]
     Active Substance: LEVONORGESTREL
     Dosage: 20 MCG/24HR, CONT
     Route: 015
     Dates: start: 201207, end: 20130708

REACTIONS (13)
  - Asthenia [None]
  - Frustration [None]
  - Uterine adhesions [None]
  - Emotional distress [None]
  - Anger [None]
  - Injury [None]
  - Nervous system disorder [None]
  - Decreased activity [None]
  - Anxiety [None]
  - Embedded device [None]
  - Pain [None]
  - Device deployment issue [None]
  - Psychological trauma [None]

NARRATIVE: CASE EVENT DATE: 2013
